FAERS Safety Report 25382754 (Version 3)
Quarter: 2025Q2

REPORT INFORMATION
  Report Type: Report from Study
  Country: US (occurrence: US)
  Receive Date: 20250602
  Receipt Date: 20250618
  Transmission Date: 20250716
  Serious: Yes (Death)
  Sender: ROCHE
  Company Number: US-ROCHE-10000299647

PATIENT
  Age: 81 Year
  Sex: Female
  Weight: 40 kg

DRUGS (4)
  1. ACTEMRA ACTPEN [Suspect]
     Active Substance: TOCILIZUMAB
     Indication: Rheumatoid arthritis
     Dosage: INJECT THE CONTENTS OF ONE DEVICE UNDER THE SKIN EVERY TWO WEEKS (EVERY 14 DAYS)
     Route: 058
  2. ATORVASTATIN [Concomitant]
     Active Substance: ATORVASTATIN
  3. ENALAPRIL [Concomitant]
     Active Substance: ENALAPRIL
  4. LATANOPROST [Concomitant]
     Active Substance: LATANOPROST

REACTIONS (11)
  - Death [Fatal]
  - Memory impairment [Unknown]
  - Dementia [Unknown]
  - Weight decreased [Unknown]
  - Anxiety [Unknown]
  - Platelet count decreased [Unknown]
  - Protein total decreased [Unknown]
  - Alanine aminotransferase increased [Unknown]
  - Blood bilirubin increased [Unknown]
  - Urinary tract infection [Unknown]
  - Crepitations [Unknown]

NARRATIVE: CASE EVENT DATE: 20250528
